FAERS Safety Report 5087030-4 (Version None)
Quarter: 2006Q3

REPORT INFORMATION
  Report Type: 
  Country: None (occurrence: None)
  Receive Date: 20060821
  Receipt Date: 20060807
  Transmission Date: 20061208
  Serious: Yes (Hospitalization, Other)
  Sender: FDA-Public Use
  Company Number: SPI200600089

PATIENT
  Age: 67 Year
  Sex: Male
  Weight: 97.1 kg

DRUGS (7)
  1. AMITIZA [Suspect]
     Indication: GASTROINTESTINAL MOTILITY DISORDER
     Dosage: 24, 2QAM + 2QPM, ORAL
     Route: 048
     Dates: start: 20060701
  2. PLAVIX [Concomitant]
  3. ATENOLOL [Concomitant]
  4. CARBIDOPA W/LEVODOPA (CARBIDOPA, LEVODOPA) [Concomitant]
  5. PHENYTOIN [Concomitant]
  6. ZELNORM [Concomitant]
  7. LOVASTATIN [Concomitant]

REACTIONS (6)
  - ABDOMINAL DISTENSION [None]
  - ANTICONVULSANT DRUG LEVEL DECREASED [None]
  - CONSTIPATION [None]
  - CONVULSION [None]
  - DRUG INEFFECTIVE [None]
  - RENAL DISORDER [None]
